FAERS Safety Report 6130853-0 (Version None)
Quarter: 2009Q1

REPORT INFORMATION
  Report Type: 
  Country: None (occurrence: None)
  Receive Date: 20090323
  Receipt Date: 20090312
  Transmission Date: 20090719
  Serious: Yes (Other)
  Sender: FDA-Public Use
  Company Number: GXKR2009CH03302

PATIENT
  Sex: Female

DRUGS (1)
  1. ENALAPRIL MALEATE [Suspect]
     Dosage: MATERNAL DOSE: 330 MG, TRANSPLACENTAL
     Route: 064

REACTIONS (5)
  - ANURIA [None]
  - MATERNAL DRUGS AFFECTING FOETUS [None]
  - POLYCYTHAEMIA [None]
  - PREMATURE BABY [None]
  - RENAL FAILURE NEONATAL [None]
